FAERS Safety Report 7510503-9 (Version None)
Quarter: 2011Q2

REPORT INFORMATION
  Report Type: 
  Country: None (occurrence: None)
  Receive Date: 20110529
  Receipt Date: 20110526
  Transmission Date: 20111010
  Serious: Yes (Hospitalization)
  Sender: FDA-Public Use
  Company Number: DE-BRISTOL-MYERS SQUIBB COMPANY-14655500

PATIENT
  Age: 44 Year
  Sex: Male
  Weight: 69 kg

DRUGS (13)
  1. ASPIRIN [Concomitant]
     Route: 048
     Dates: start: 20050101
  2. ACETAMINOPHEN [Concomitant]
     Route: 048
     Dates: start: 20090328, end: 20090428
  3. METAMIZOLE SODIUM [Concomitant]
     Route: 048
     Dates: start: 20090323
  4. FUROSEMIDE [Concomitant]
     Indication: PROPHYLAXIS
     Dosage: 01APR-01APR2009 27APR-27APR2009
     Route: 042
     Dates: start: 20090401, end: 20090427
  5. CISPLATIN [Suspect]
     Indication: GASTROOESOPHAGEAL CANCER
     Dosage: ON DAY 1 OF CYCLE;1ST INF ON 01APR09;RECENT INFUSION 27APR09
     Route: 042
     Dates: start: 20090401, end: 20090427
  6. PAMIDRONATE DISODIUM [Concomitant]
     Route: 042
     Dates: start: 20090326, end: 20090326
  7. DEXAMETHASONE [Concomitant]
     Dosage: DEXAMETHASONE DIHYDROGEN PHOSPHATE DISODIUM
     Route: 048
     Dates: start: 20090428
  8. CIPROFLOXACIN [Concomitant]
     Dosage: 23MAR-23MAR2009(500MG) 27MAR-28MAR2009(1000MG)
     Route: 048
     Dates: start: 20090323, end: 20090328
  9. OXYCODONE HCL [Concomitant]
     Dosage: 23MAR09-31MAR09 (10MG) 01APR2009 TO ONG (20MG)
     Route: 048
     Dates: start: 20090323
  10. PANTOPRAZOLE [Concomitant]
     Indication: PROPHYLAXIS
     Route: 048
     Dates: start: 20090323
  11. XELODA [Suspect]
     Indication: GASTROOESOPHAGEAL CANCER
     Dosage: ON DAY 1-15;1ST INF ON 02APR09;RECENT INF 07MAY09 FORM = TABS
     Route: 048
     Dates: start: 20090402, end: 20090507
  12. MAGNESIUM SULFATE [Concomitant]
     Indication: PROPHYLAXIS
     Dosage: 1DF: 2 AMP
     Route: 048
     Dates: start: 20090401, end: 20090401
  13. FLURAZEPAM [Concomitant]
     Route: 048
     Dates: start: 20090325

REACTIONS (2)
  - SUBARACHNOID HAEMORRHAGE [None]
  - CONVULSION [None]
